FAERS Safety Report 4363241-8 (Version None)
Quarter: 2004Q2

REPORT INFORMATION
  Report Type: 
  Country: None (occurrence: None)
  Receive Date: 20040518
  Receipt Date: 20040510
  Transmission Date: 20050107
  Serious: Yes (Life-Threatening)
  Sender: FDA-Public Use
  Company Number: 2004IC000104

PATIENT
  Age: 24 Year
  Sex: Male
  Weight: 50 kg

DRUGS (1)
  1. VIRAZOLE [Suspect]
     Indication: GASTROINTESTINAL INFECTION
     Dosage: 3.6 GM; DAILY; INTRAVENOUS
     Route: 042
     Dates: start: 20031207, end: 20031211

REACTIONS (1)
  - BONE MARROW DEPRESSION [None]
